FAERS Safety Report 17996430 (Version 1)
Quarter: 2020Q3

REPORT INFORMATION
  Report Type: Spontaneous
  Country: CN (occurrence: CN)
  Receive Date: 20200708
  Receipt Date: 20200708
  Transmission Date: 20201103
  Serious: Yes (Life-Threatening, Hospitalization, Other)
  Sender: FDA-Public Use
  Company Number: CN-ASTRAZENECA-2020SE85923

PATIENT
  Age: 20589 Day
  Sex: Male
  Weight: 67 kg

DRUGS (4)
  1. SEROQUEL [Suspect]
     Active Substance: QUETIAPINE FUMARATE
     Indication: NERVOUS SYSTEM DISORDER
     Route: 048
     Dates: start: 20200623, end: 20200624
  2. MAGNESIUM VALPROATE [Suspect]
     Active Substance: VALPROATE MAGNESIUM
     Indication: NERVOUS SYSTEM DISORDER
     Route: 048
     Dates: start: 20200623, end: 20200624
  3. DIAZEPAM. [Suspect]
     Active Substance: DIAZEPAM
     Indication: RESTLESSNESS
     Route: 042
     Dates: start: 20200624, end: 20200624
  4. SEROQUEL [Suspect]
     Active Substance: QUETIAPINE FUMARATE
     Indication: NERVOUS SYSTEM DISORDER
     Route: 048
     Dates: start: 20200623, end: 20200624

REACTIONS (5)
  - Coma [Unknown]
  - Sedation complication [Recovering/Resolving]
  - Somnolence [Recovered/Resolved]
  - Miosis [Unknown]
  - Pupillary reflex impaired [Unknown]

NARRATIVE: CASE EVENT DATE: 20200624
